FAERS Safety Report 7515717-X (Version None)
Quarter: 2011Q2

REPORT INFORMATION
  Report Type: 
  Country: None (occurrence: None)
  Receive Date: 20110601
  Receipt Date: 20101102
  Transmission Date: 20111010
  Serious: Yes (Other)
  Sender: FDA-Public Use
  Company Number: US-PFIZER INC-2010139700

PATIENT
  Sex: Female

DRUGS (1)
  1. CHANTIX [Suspect]
     Dosage: UNK
     Dates: start: 20100101, end: 20100101

REACTIONS (3)
  - DEPRESSED MOOD [None]
  - WITHDRAWAL SYNDROME [None]
  - ANXIETY [None]
